FAERS Safety Report 6056039-6 (Version None)
Quarter: 2009Q1

REPORT INFORMATION
  Report Type: 
  Country: None (occurrence: None)
  Receive Date: 20090128
  Receipt Date: 20090115
  Transmission Date: 20090719
  Serious: Yes (Hospitalization)
  Sender: FDA-Public Use
  Company Number: FR-ELI_LILLY_AND_COMPANY-FR200812000462

PATIENT
  Age: 60 Year
  Sex: Female

DRUGS (4)
  1. FORTEO [Suspect]
     Indication: OSTEOPOROSIS
     Dosage: 20 UG, DAILY (1/D)
     Dates: start: 20070711
  2. CORTANCYL [Concomitant]
     Dosage: UNK, UNKNOWN
  3. INSULIN [Concomitant]
     Dosage: UNK, UNKNOWN
  4. POTASSIUM CHLORIDE [Concomitant]
     Dosage: UNK, UNKNOWN

REACTIONS (2)
  - BACK PAIN [None]
  - LUNG INFECTION [None]
